FAERS Safety Report 8403643-3 (Version None)
Quarter: 2012Q2

REPORT INFORMATION
  Report Type: 
  Country: None (occurrence: None)
  Receive Date: 20120601
  Receipt Date: 20120522
  Transmission Date: 20120825
  Serious: Yes (Hospitalization)
  Sender: FDA-Public Use
  Company Number: US-ACTELION-A-NJ2012-66223

PATIENT

DRUGS (3)
  1. TRACLEER [Suspect]
     Indication: PULMONARY ARTERIAL HYPERTENSION
     Dosage: UNK
     Route: 048
     Dates: start: 20110531
  2. CALCIUM CHANNEL BLOCKERS [Concomitant]
  3. ASPIRIN [Concomitant]

REACTIONS (4)
  - RENAL FAILURE [None]
  - ASCITES [None]
  - GASTRIC DISORDER [None]
  - DYSPNOEA [None]
